FAERS Safety Report 19388846 (Version 1)
Quarter: 2021Q2

REPORT INFORMATION
  Report Type: Spontaneous
  Country: AR (occurrence: AR)
  Receive Date: 20210608
  Receipt Date: 20210608
  Transmission Date: 20210717
  Serious: Yes (Other)
  Sender: FDA-Public Use
  Company Number: AR-ALKEM LABORATORIES LIMITED-AR-ALKEM-2021-02193

PATIENT
  Age: 59 Year
  Sex: Male

DRUGS (5)
  1. PREDNISONE. [Suspect]
     Active Substance: PREDNISONE
     Indication: HIV INFECTION
     Dosage: UNK
     Route: 065
  2. TACROLIMUS. [Suspect]
     Active Substance: TACROLIMUS
     Indication: HIV INFECTION
     Dosage: 1 MILLIGRAM, ONCE WEEKLY
     Route: 065
  3. TACROLIMUS. [Suspect]
     Active Substance: TACROLIMUS
     Dosage: 1.5 MILLIGRAM, ONCE WEEKLY
     Route: 065
  4. BASILIXIMAB [Suspect]
     Active Substance: BASILIXIMAB
     Indication: HIV INFECTION
     Dosage: UNK
     Route: 065
  5. EVEROLIMUS. [Suspect]
     Active Substance: EVEROLIMUS
     Indication: HIV INFECTION
     Dosage: 0.5 MILLIGRAM, 48 H
     Route: 065

REACTIONS (1)
  - Kaposi sarcoma inflammatory cytokine syndrome [Not Recovered/Not Resolved]
